FAERS Safety Report 13500359 (Version 1)
Quarter: 2017Q2

REPORT INFORMATION
  Report Type: Spontaneous
  Country: PL (occurrence: PL)
  Receive Date: 20170501
  Receipt Date: 20170501
  Transmission Date: 20170830
  Serious: Yes (Hospitalization)
  Sender: FDA-Public Use
  Company Number: PL-PFIZER INC-2017190821

PATIENT
  Age: 64 Year
  Sex: Female
  Weight: 48 kg

DRUGS (1)
  1. METHOTREXATE. [Suspect]
     Active Substance: METHOTREXATE
     Indication: RHEUMATOID ARTHRITIS
     Dosage: 25 MG, WEEKLY
     Route: 048
     Dates: start: 20170315, end: 20170317

REACTIONS (7)
  - Mastication disorder [Recovering/Resolving]
  - White blood cell count decreased [Recovering/Resolving]
  - Stomatitis [Recovering/Resolving]
  - Dysphagia [Recovering/Resolving]
  - Cheilitis [Recovering/Resolving]
  - Oral discomfort [Recovering/Resolving]
  - Thrombocytopenia [Recovering/Resolving]

NARRATIVE: CASE EVENT DATE: 20170317
